FAERS Safety Report 22336643 (Version 2)
Quarter: 2023Q2

REPORT INFORMATION
  Report Type: Spontaneous
  Country: JP (occurrence: JP)
  Receive Date: 20230518
  Receipt Date: 20230628
  Transmission Date: 20230722
  Serious: Yes (Death, Other)
  Sender: FDA-Public Use
  Company Number: JP-BRISTOL-MYERS SQUIBB COMPANY-2023-067527

PATIENT
  Age: 8 Decade
  Sex: Male

DRUGS (9)
  1. ELIQUIS [Suspect]
     Active Substance: APIXABAN
     Indication: Product used for unknown indication
     Route: 048
  2. METHIMAZOLE [Concomitant]
     Active Substance: METHIMAZOLE
     Indication: Hyperthyroidism
     Route: 048
  3. WARFARIN POTASSIUM [Concomitant]
     Active Substance: WARFARIN POTASSIUM
     Indication: Product used for unknown indication
     Route: 048
  4. BISOPROLOL FUMARATE [Concomitant]
     Active Substance: BISOPROLOL FUMARATE
     Indication: Product used for unknown indication
     Route: 048
  5. AZOSEMIDE [Concomitant]
     Active Substance: AZOSEMIDE
     Indication: Product used for unknown indication
     Route: 048
  6. SPIRONOLACTONE [Concomitant]
     Active Substance: SPIRONOLACTONE
     Indication: Product used for unknown indication
     Route: 048
  7. PITAVASTATIN CALCIUM [Concomitant]
     Active Substance: PITAVASTATIN CALCIUM
     Indication: Product used for unknown indication
     Route: 048
  8. CAR [PIPERACILLIN;TAZOBACTAM] [Concomitant]
     Indication: Product used for unknown indication
  9. HP [HEPARINOID] [Concomitant]
     Indication: Product used for unknown indication

REACTIONS (8)
  - Drug-induced liver injury [Recovered/Resolved]
  - Pneumonia aspiration [Not Recovered/Not Resolved]
  - Pyelonephritis [Unknown]
  - Congestive hepatopathy [Recovered/Resolved]
  - Right ventricular failure [Unknown]
  - Sepsis [Fatal]
  - Acute respiratory distress syndrome [Fatal]
  - Pulmonary alveolar haemorrhage [Unknown]
